FAERS Safety Report 10747685 (Version 1)
Quarter: 2015Q1

REPORT INFORMATION
  Report Type: Spontaneous
  Country: US (occurrence: None)
  Receive Date: 20150127
  Receipt Date: 20150127
  Transmission Date: 20150721
  Serious: Yes (Death)
  Sender: FDA-Public Use
  Company Number: 2015PAC00005

PATIENT
  Age: 65 Year
  Sex: Female

DRUGS (2)
  1. LOSARTAN (LOSARTAN) [Suspect]
     Active Substance: LOSARTAN
  2. AMLODIPINE [Suspect]
     Active Substance: AMLODIPINE BESYLATE

REACTIONS (2)
  - Hypotension [None]
  - Coma [None]
